FAERS Safety Report 7440136-4 (Version None)
Quarter: 2011Q2

REPORT INFORMATION
  Report Type: 
  Country: None (occurrence: None)
  Receive Date: 20110427
  Receipt Date: 20110411
  Transmission Date: 20111010
  Serious: Yes (Hospitalization, Other)
  Sender: FDA-Public Use
  Company Number: US-BAYER-2011-007567

PATIENT
  Age: 28 Year
  Sex: Female
  Weight: 68 kg

DRUGS (6)
  1. PERCOCET [Concomitant]
     Indication: PAIN
     Dosage: UNK UNK, PRN
     Route: 048
     Dates: start: 20070818
  2. CHANTIX [Concomitant]
     Indication: EX-TOBACCO USER
     Dosage: 4 MG, BID
     Route: 048
     Dates: start: 20070818
  3. NASONEX [Concomitant]
     Route: 045
  4. YASMIN [Suspect]
     Indication: CONTRACEPTION
     Dosage: UNK
     Dates: start: 20070301, end: 20070801
  5. NAPROXEN [Concomitant]
     Dosage: 200 MG, BID
     Route: 048
  6. LEVAQUIN [Concomitant]
     Dosage: 500 MG, QID
     Route: 048

REACTIONS (5)
  - PULMONARY EMBOLISM [None]
  - PAIN [None]
  - DYSPNOEA [None]
  - PULMONARY INFARCTION [None]
  - HEADACHE [None]
